FAERS Safety Report 5909082-9 (Version None)
Quarter: 2008Q4

REPORT INFORMATION
  Report Type: 
  Country: None (occurrence: None)
  Receive Date: 20081006
  Receipt Date: 20080925
  Transmission Date: 20090506
  Serious: Yes (Hospitalization)
  Sender: FDA-Public Use
  Company Number: DE-ROCHE-586742

PATIENT
  Sex: Male
  Weight: 104 kg

DRUGS (11)
  1. CAPECITABINE [Suspect]
     Route: 065
     Dates: start: 20071101
  2. CAPECITABINE [Suspect]
     Dosage: DOSAGE REDUCED.
     Route: 065
  3. CAPECITABINE [Suspect]
     Dosage: ROUTE REPORTED AS INTRAVENOUS
     Route: 065
     Dates: start: 20080820, end: 20080820
  4. CAPECITABINE [Suspect]
     Route: 065
     Dates: end: 20080901
  5. AVASTIN [Suspect]
     Dosage: DOSAGE REGIMEN: 5 MG/KG BODY WEIGHT
     Route: 042
     Dates: start: 20070401
  6. AVASTIN [Suspect]
     Route: 042
     Dates: start: 20080820, end: 20080820
  7. AVASTIN [Suspect]
     Route: 042
     Dates: end: 20080901
  8. OXALIPLATIN [Suspect]
     Dosage: DRUG: (CAPOX)
     Route: 042
     Dates: start: 20071101
  9. OXALIPLATIN [Suspect]
     Dosage: DOSAGE REDUCED.
     Route: 042
  10. OXALIPLATIN [Suspect]
     Route: 042
     Dates: start: 20080820, end: 20080820
  11. FOLFIRI [Concomitant]
     Dates: start: 20070401, end: 20071101

REACTIONS (8)
  - DISEASE PROGRESSION [None]
  - FACE OEDEMA [None]
  - HAEMORRHAGE SUBCUTANEOUS [None]
  - MYOSCLEROSIS [None]
  - PAIN [None]
  - PALMAR-PLANTAR ERYTHRODYSAESTHESIA SYNDROME [None]
  - POLYNEUROPATHY [None]
  - RHABDOMYOLYSIS [None]
